FAERS Safety Report 13535325 (Version 3)
Quarter: 2017Q3

REPORT INFORMATION
  Report Type: Spontaneous
  Country: US (occurrence: US)
  Receive Date: 20170511
  Receipt Date: 20170726
  Transmission Date: 20171127
  Serious: Yes (Other)
  Sender: FDA-Public Use
  Company Number: US-CONCORDIA PHARMACEUTICALS INC.-GSH201502-001700

PATIENT
  Age: 66 Year
  Sex: Male

DRUGS (9)
  1. RITUXIMAB. [Suspect]
     Active Substance: RITUXIMAB
     Indication: B-CELL LYMPHOMA
     Dosage: R-CHOP, 4 CYCLES
     Dates: start: 201302
  2. PREDNISOLONE. [Suspect]
     Active Substance: PREDNISOLONE
     Indication: B-CELL LYMPHOMA
     Dosage: LONG-TERM USE
  3. TRIMETHOPRIM SULFAMETHOXAZOLE [Suspect]
     Active Substance: SULFAMETHOXAZOLE\TRIMETHOPRIM
     Indication: PNEUMOCYSTIS JIROVECII PNEUMONIA
     Dosage: SULFAMETHOXAZOLE 800MG, TRIMETHOPRIM 160MG, 2 TABS BY MOUTH EVERY 6 HOURS (15.6 MG/KG/DAY OF TRIMETH
     Route: 048
  4. HYDROXYDAUNORUBICIN [Suspect]
     Active Substance: DOXORUBICIN
     Indication: B-CELL LYMPHOMA
     Dosage: 4 CYCLES, R-CHOP
     Dates: start: 201302
  5. TRIMETHOPRIM SULFAMETHOXAZOLE [Suspect]
     Active Substance: SULFAMETHOXAZOLE\TRIMETHOPRIM
     Indication: PROPHYLAXIS
     Dosage: DAILY (1.9 MG/KG/DAY), SINGLE STRENGTH TMP-SMX
  6. ACYCLOVIR. [Suspect]
     Active Substance: ACYCLOVIR
     Indication: B-CELL LYMPHOMA
     Dosage: LONG-TERM USE
  7. CYCLOPHOSPHAMIDE. [Suspect]
     Active Substance: CYCLOPHOSPHAMIDE
     Indication: B-CELL LYMPHOMA
     Dosage: 4 CYCLES, R-CHOP
     Dates: start: 201302
  8. VINCRISTINE [Suspect]
     Active Substance: VINCRISTINE
     Indication: B-CELL LYMPHOMA
     Dosage: 4 CYCLES, R-CHOP
     Dates: start: 201302
  9. TRIMETHOPRIM SULFAMETHOXAZOLE [Suspect]
     Active Substance: SULFAMETHOXAZOLE\TRIMETHOPRIM
     Indication: URINARY TRACT INFECTION
     Dosage: TRIMETHOPRIM 180MG, SULFAMETHOXAZOLE 800 MG,DOUBLE STRENGTH
     Dates: start: 201304

REACTIONS (5)
  - Postural tremor [Recovered/Resolved]
  - Asterixis [Recovered/Resolved]
  - Pneumocystis jirovecii pneumonia [Unknown]
  - Myoclonus [Recovered/Resolved]
  - Thrombocytopenia [Recovered/Resolved]
